FAERS Safety Report 20016526 (Version 1)
Quarter: 2021Q4

REPORT INFORMATION
  Report Type: Spontaneous
  Country: US (occurrence: None)
  Receive Date: 20211104
  Receipt Date: 20211104
  Transmission Date: 20220303
  Serious: Yes (Death)
  Sender: FDA-Public Use
  Company Number: None

PATIENT
  Sex: Male

DRUGS (21)
  1. RETEVMO [Suspect]
     Active Substance: SELPERCATINIB
     Indication: Lung carcinoma cell type unspecified stage 0
     Dosage: TAAKE 3 CASPULES (120MG) BY MOUTH TWICE DAILY
     Route: 048
     Dates: start: 20201021
  2. ASPIRIN CHW 81MG [Concomitant]
  3. ATORVASTATIN TAB 40MG [Concomitant]
  4. BUPROPION TAB 150MG SR [Concomitant]
  5. CLONAZEPAM TAB 1MG [Concomitant]
  6. CPAP + BIPAP MIS HOSE [Concomitant]
  7. DEPLIN 15 CAP [Concomitant]
  8. DILTIAZEM CAP 180MG ER [Concomitant]
  9. ELIQUIS TAB 5MG [Concomitant]
  10. FOLIC ACID TAB 1MG [Concomitant]
  11. FUROSEMIDE TAB 40MG [Concomitant]
  12. GABAPENTIN CAP 300MG [Concomitant]
  13. ISOSORB D DIN TAB 10MG [Concomitant]
  14. LANSOPRAZOLE [Concomitant]
     Active Substance: LANSOPRAZOLE
  15. LEVOTHYROXIN TAB 150MCG [Concomitant]
  16. METOPROL SUC TAB 25MG ER [Concomitant]
  17. MIRTAZAPINE TAB 15MG [Concomitant]
  18. NITROSTAT SUB 0.4MG [Concomitant]
  19. POT CHLORIDE TAB 20MEQ ER [Concomitant]
  20. TAMSULOSIN CAP 0.4MG [Concomitant]
  21. VITAMIN D3 [Concomitant]
     Active Substance: CHOLECALCIFEROL

REACTIONS (1)
  - Hospitalisation [None]
